FAERS Safety Report 8764237 (Version 3)
Quarter: 2012Q4

REPORT INFORMATION
  Report Type: 
  Country: JP (occurrence: JP)
  Receive Date: 20120831
  Receipt Date: 20121224
  Transmission Date: 20130627
  Serious: Yes (Hospitalization)
  Sender: FDA-Public Use
  Company Number: JP-009507513-1208JPN011739

PATIENT
  Age: 60 Year
  Sex: Female

DRUGS (8)
  1. JANUVIA TABLETS 50MG [Suspect]
     Indication: DIABETES MELLITUS
     Dosage: 50 mg, qd
     Route: 048
     Dates: start: 201004, end: 20120707
  2. AMARYL [Concomitant]
     Indication: DIABETES MELLITUS
     Dosage: 0.5 mg, qd
     Route: 048
     Dates: start: 2009
  3. OLMETEC [Concomitant]
     Indication: HYPERTENSION
     Dosage: 20 mg, qd
     Route: 048
     Dates: start: 2009
  4. EPADEL [Concomitant]
     Indication: HYPERLIPIDAEMIA
     Dosage: 600 mg, tid
     Route: 048
     Dates: start: 2009
  5. URSO [Concomitant]
     Indication: HEPATIC FUNCTION ABNORMAL
     Dosage: 200 mg, tid
     Route: 048
     Dates: start: 2009
  6. NEORAL [Concomitant]
     Indication: PSORIASIS
     Dosage: 100 mg, qd
     Route: 048
     Dates: start: 2009, end: 20120627
  7. NEORAL [Concomitant]
     Dosage: 100 mg, qd
     Route: 048
     Dates: start: 20120707
  8. MEDROL [Concomitant]
     Indication: PSORIASIS
     Dosage: UNK
     Route: 048
     Dates: start: 2009

REACTIONS (2)
  - Haematuria [Recovering/Resolving]
  - Renal disorder [Unknown]
